FAERS Safety Report 9334768 (Version 1)
Quarter: 2013Q2

REPORT INFORMATION
  Report Type: Spontaneous
  Country: US (occurrence: US)
  Receive Date: 20130606
  Receipt Date: 20130606
  Transmission Date: 20140414
  Serious: No
  Sender: FDA-Public Use
  Company Number: US-AMGEN-USASP2013015698

PATIENT
  Age: 39 Year
  Sex: Male

DRUGS (11)
  1. PROLIA [Suspect]
     Indication: PRODUCT USED FOR UNKNOWN INDICATION
     Dosage: 60 MG, UNK
     Route: 058
     Dates: start: 20130226
  2. VITAMIN D                          /00107901/ [Concomitant]
  3. CENTRUM                            /02217401/ [Concomitant]
  4. ATORVASTATIN [Concomitant]
     Dosage: 10 MG, QHS
  5. OMEPRAZOLE [Concomitant]
     Dosage: 20 MG, BID
  6. DICYCLOMINE                        /00068601/ [Concomitant]
     Dosage: 20 MG, QID
  7. FLONASE [Concomitant]
     Dosage: 20000 UNK, QD
     Route: 045
  8. TRAMADOL [Concomitant]
     Dosage: 50 MG, QID
  9. MEDROL                             /00049601/ [Concomitant]
     Dosage: UNK
     Dates: start: 20130125
  10. TESTIM [Concomitant]
  11. LYRICA [Concomitant]
     Dosage: 100 MG, BID

REACTIONS (3)
  - Pain in jaw [Not Recovered/Not Resolved]
  - Headache [Recovered/Resolved]
  - Ear pain [Recovered/Resolved]
